FAERS Safety Report 5992350-2 (Version None)
Quarter: 2008Q4

REPORT INFORMATION
  Report Type: 
  Country: None (occurrence: None)
  Receive Date: 20081202
  Receipt Date: 20080110
  Transmission Date: 20090506
  Serious: Yes (Other)
  Sender: FDA-Public Use
  Company Number: WAES 0705USA02812

PATIENT
  Age: 48 Year
  Sex: Female
  Weight: 57.6068 kg

DRUGS (3)
  1. FOSAMAX [Suspect]
     Indication: OSTEOPENIA
     Dosage: 70 MG/DAILY/PO
     Route: 048
     Dates: start: 20030101, end: 20060605
  2. FOSAMAX [Suspect]
     Indication: OSTEOPOROSIS
     Dosage: 70 MG/DAILY/PO
     Route: 048
     Dates: start: 20030101, end: 20060605
  3. ACTONEL [Suspect]
     Dosage: 35 MG/WKY
     Dates: start: 20060601

REACTIONS (9)
  - ANIMAL BITE [None]
  - CELLULITIS [None]
  - CORONARY ARTERY DISEASE [None]
  - DENTAL CARIES [None]
  - INAPPROPRIATE SCHEDULE OF DRUG ADMINISTRATION [None]
  - OSTEONECROSIS [None]
  - OVERDOSE [None]
  - RESORPTION BONE INCREASED [None]
  - TOOTH LOSS [None]
